FAERS Safety Report 13010877 (Version 1)
Quarter: 2016Q4

REPORT INFORMATION
  Report Type: Report from Study
  Country: PL (occurrence: PL)
  Receive Date: 20161208
  Receipt Date: 20161208
  Transmission Date: 20170207
  Serious: Yes (Death, Congenital Anomaly, Other)
  Sender: FDA-Public Use
  Company Number: PL-MYLANLABS-2016M1053817

PATIENT

DRUGS (1)
  1. TACROLIMUS. [Suspect]
     Active Substance: TACROLIMUS
     Route: 064

REACTIONS (6)
  - Serratia sepsis [Unknown]
  - Low birth weight baby [Unknown]
  - Premature baby [Unknown]
  - Death [Fatal]
  - Foetal exposure during pregnancy [Recovered/Resolved]
  - Congenital infection [Unknown]
